FAERS Safety Report 8611625-1 (Version None)
Quarter: 2012Q3

REPORT INFORMATION
  Report Type: 
  Country: None (occurrence: None)
  Receive Date: 20120822
  Receipt Date: 20120814
  Transmission Date: 20120928
  Serious: Yes (Hospitalization, Other)
  Sender: FDA-Public Use
  Company Number: BR-ABBOTT-12P-020-0968989-00

PATIENT
  Sex: Female
  Weight: 73 kg

DRUGS (9)
  1. LEVOTHYROXINE SODIUM [Suspect]
     Indication: PRODUCT USED FOR UNKNOWN INDICATION
  2. PROPAFENONE HCL [Concomitant]
     Indication: CARDIAC DISORDER
     Route: 048
  3. EPAREMA [Concomitant]
     Indication: CHEST PAIN
     Dosage: IN THE MORNING/AT NIGHT/AS NEEDED
     Route: 048
     Dates: start: 19850101
  4. SYNTHROID [Suspect]
     Indication: HYPOTHYROIDISM
  5. TIMOLOL MALEATE [Concomitant]
     Indication: PRODUCT USED FOR UNKNOWN INDICATION
     Dosage: 1 DROP IN EACH EYE, TWICE PER DAY
  6. DIMETHICONE [Concomitant]
     Indication: FLATULENCE
     Dosage: 15 DROPS AFTER MEALS/AS NEEDED
     Route: 048
     Dates: start: 19850101
  7. DRAMIN B6 [Concomitant]
     Indication: LABYRINTHITIS
     Dosage: ONCE OR TWICE PER DAY, AS NEEDED
     Route: 048
  8. LEVOTHYROXINE SODIUM [Suspect]
     Indication: PRODUCT USED FOR UNKNOWN INDICATION
  9. SYNTHROID [Suspect]
     Route: 048
     Dates: start: 20070101

REACTIONS (15)
  - MALAISE [None]
  - BLOOD CHOLESTEROL INCREASED [None]
  - VASODILATATION [None]
  - FEELING ABNORMAL [None]
  - HEADACHE [None]
  - SKIN DISCOLOURATION [None]
  - HEART RATE INCREASED [None]
  - CATARACT [None]
  - PERIPHERAL EMBOLISM [None]
  - DRY MOUTH [None]
  - PAIN IN EXTREMITY [None]
  - FEMORAL ARTERY EMBOLISM [None]
  - HYPERSENSITIVITY [None]
  - HYPERTENSION [None]
  - GLAUCOMA [None]
